FAERS Safety Report 16839175 (Version 4)
Quarter: 2019Q4

REPORT INFORMATION
  Report Type: Spontaneous
  Country: US (occurrence: US)
  Receive Date: 20190923
  Receipt Date: 20191202
  Transmission Date: 20200122
  Serious: No
  Sender: FDA-Public Use
  Company Number: US-PFIZER INC-2019404993

PATIENT
  Age: 76 Year
  Sex: Female
  Weight: 57.6 kg

DRUGS (4)
  1. REVATIO [Suspect]
     Active Substance: SILDENAFIL CITRATE
     Indication: BLOOD PRESSURE ABNORMAL
  2. ASALIT [Concomitant]
     Dosage: 1 MG, 3X/DAY
  3. REVATIO [Suspect]
     Active Substance: SILDENAFIL CITRATE
     Indication: PAIN
     Dosage: 20 MG, 3X/DAY
     Dates: start: 2005
  4. RYTARY [Concomitant]
     Active Substance: CARBIDOPA\LEVODOPA
     Indication: PARKINSON^S DISEASE
     Dosage: 2 DF, 4X/DAY (61.25-245 MG)

REACTIONS (2)
  - Dysgraphia [Unknown]
  - Muscle spasms [Not Recovered/Not Resolved]
